FAERS Safety Report 10187430 (Version 1)
Quarter: 2014Q2

REPORT INFORMATION
  Report Type: Spontaneous
  Country: US (occurrence: None)
  Receive Date: 20140521
  Receipt Date: 20140521
  Transmission Date: 20141212
  Serious: No
  Sender: FDA-Public Use
  Company Number: None

PATIENT
  Age: 40 Year
  Sex: Female

DRUGS (1)
  1. IMURAN (AZATHIOPRINE) [Suspect]
     Indication: COLITIS MICROSCOPIC
     Dates: start: 20120712, end: 20120827

REACTIONS (3)
  - Drug-induced liver injury [None]
  - Hepatitis acute [None]
  - Hepatic steatosis [None]
